FAERS Safety Report 19012200 (Version 1)
Quarter: 2021Q1

REPORT INFORMATION
  Report Type: Spontaneous
  Country: US (occurrence: US)
  Receive Date: 20210316
  Receipt Date: 20210316
  Transmission Date: 20210420
  Serious: No
  Sender: FDA-Public Use
  Company Number: US-SA-2021SA086109

PATIENT
  Age: 64 Year
  Sex: Female

DRUGS (5)
  1. LISINOPRIL. [Concomitant]
     Active Substance: LISINOPRIL
  2. PIMECROLIMUS. [Concomitant]
     Active Substance: PIMECROLIMUS
  3. DUPIXENT [Suspect]
     Active Substance: DUPILUMAB
     Indication: DERMATITIS ATOPIC
     Dosage: 300 MG, QOW
     Route: 058
  4. DESOXIMETASON [Concomitant]
     Active Substance: DESOXIMETASONE
  5. TACROLIMUS. [Concomitant]
     Active Substance: TACROLIMUS

REACTIONS (2)
  - Pain [Not Recovered/Not Resolved]
  - Rash [Not Recovered/Not Resolved]
